FAERS Safety Report 5660211-4 (Version None)
Quarter: 2008Q1

REPORT INFORMATION
  Report Type: 
  Country: None (occurrence: None)
  Receive Date: 20080212
  Receipt Date: 20071207
  Transmission Date: 20080703
  Serious: Yes (Other)
  Sender: FDA-Public Use
  Company Number: MC200700726

PATIENT
  Sex: Female

DRUGS (5)
  1. ANGIOMAX [Suspect]
     Indication: PERCUTANEOUS CORONARY INTERVENTION
     Dosage: BLOUS, IV BOLUS; INTRAVENOUS
     Route: 040
     Dates: start: 20071127, end: 20071127
  2. ANGIOMAX [Suspect]
     Indication: PERCUTANEOUS CORONARY INTERVENTION
     Dosage: BLOUS, IV BOLUS; INTRAVENOUS
     Route: 040
     Dates: start: 20071127, end: 20071127
  3. ASPIRIN [Concomitant]
  4. PLAVIX [Concomitant]
  5. CLOPIDOGREL [Concomitant]

REACTIONS (2)
  - HAEMATOMA [None]
  - HAEMOGLOBIN DECREASED [None]
